FAERS Safety Report 24837971 (Version 2)
Quarter: 2025Q1

REPORT INFORMATION
  Report Type: Spontaneous
  Country: US (occurrence: US)
  Receive Date: 20250113
  Receipt Date: 20250122
  Transmission Date: 20250409
  Serious: No
  Sender: BRISTOL-MYERS SQUIBB COMPANY
  Company Number: US-BRISTOL-MYERS SQUIBB COMPANY-2025-004478

PATIENT
  Age: 91 Year
  Sex: Male

DRUGS (1)
  1. REBLOZYL [Suspect]
     Active Substance: LUSPATERCEPT-AAMT
     Indication: Anaemia
     Dates: start: 2024

REACTIONS (3)
  - Pruritus [Unknown]
  - Middle insomnia [Unknown]
  - Off label use [Unknown]
